FAERS Safety Report 20729293 (Version 1)
Quarter: 2022Q2

REPORT INFORMATION
  Report Type: Spontaneous
  Country: US (occurrence: US)
  Receive Date: 20220420
  Receipt Date: 20220420
  Transmission Date: 20220721
  Serious: No
  Sender: FDA-Public Use
  Company Number: US-JNJFOC-20220434107

PATIENT

DRUGS (1)
  1. MOTRIN [Suspect]
     Active Substance: IBUPROFEN
     Indication: Pain
     Route: 065

REACTIONS (2)
  - Dysgeusia [Unknown]
  - Product physical issue [Unknown]
